FAERS Safety Report 15219298 (Version 1)
Quarter: 2018Q3

REPORT INFORMATION
  Report Type: Other
  Country: US (occurrence: US)
  Receive Date: 20180731
  Receipt Date: 20180731
  Transmission Date: 20181010
  Serious: No
  Sender: FDA-Public Use
  Company Number: US-EMMAUS MEDICAL, INC.-EMM201807-000310

PATIENT
  Sex: Male

DRUGS (8)
  1. CLINDAMYCIN. [Concomitant]
     Active Substance: CLINDAMYCIN
  2. FOLIC ACID. [Concomitant]
     Active Substance: FOLIC ACID
  3. ENDARI [Suspect]
     Active Substance: GLUTAMINE
     Indication: PRODUCT USED FOR UNKNOWN INDICATION
     Route: 048
     Dates: start: 20180227
  4. OXYCONTIN [Concomitant]
     Active Substance: OXYCODONE HYDROCHLORIDE
  5. GABAPENTIN. [Concomitant]
     Active Substance: GABAPENTIN
  6. HYDROMORPHONE [Concomitant]
     Active Substance: HYDROMORPHONE
  7. HYDROXYUREA. [Concomitant]
     Active Substance: HYDROXYUREA
  8. CYCLOBENZAPRINE. [Concomitant]
     Active Substance: CYCLOBENZAPRINE

REACTIONS (1)
  - Condition aggravated [Unknown]
